FAERS Safety Report 13964504 (Version 3)
Quarter: 2018Q1

REPORT INFORMATION
  Report Type: Spontaneous
  Country: US (occurrence: US)
  Receive Date: 20170913
  Receipt Date: 20180101
  Transmission Date: 20180508
  Serious: Yes (Other)
  Sender: FDA-Public Use
  Company Number: US-ROCHE-1971903

PATIENT
  Age: 51 Year
  Sex: Female

DRUGS (3)
  1. ALECENSA [Suspect]
     Active Substance: ALECTINIB HYDROCHLORIDE
     Indication: LUNG NEOPLASM MALIGNANT
     Route: 048
     Dates: start: 201607
  2. ALECENSA [Suspect]
     Active Substance: ALECTINIB HYDROCHLORIDE
     Dosage: 4 CAPSULES TWICE DAILY
     Route: 048
  3. ALECENSA [Suspect]
     Active Substance: ALECTINIB HYDROCHLORIDE
     Route: 048
     Dates: start: 20160722

REACTIONS (8)
  - Headache [Unknown]
  - Abdominal discomfort [Unknown]
  - Headache [Unknown]
  - Seizure [Unknown]
  - Neuropathy peripheral [Unknown]
  - Amnesia [Unknown]
  - Eye infection [Unknown]
  - Rhinalgia [Unknown]

NARRATIVE: CASE EVENT DATE: 201607
